FAERS Safety Report 10516567 (Version 1)
Quarter: 2014Q4

REPORT INFORMATION
  Report Type: Spontaneous
  Country: US (occurrence: None)
  Receive Date: 20141003
  Receipt Date: 20141003
  Transmission Date: 20150528
  Serious: Yes (Hospitalization, Other)
  Sender: FDA-Public Use
  Company Number: 1363646

PATIENT
  Age: 54 Year
  Sex: Male

DRUGS (5)
  1. LACTULOSE. [Concomitant]
     Active Substance: LACTULOSE
  2. RIBAVIRIN(RIBAVIRIN) [Suspect]
     Active Substance: RIBAVIRIN
     Indication: CHRONIC HEPATITIS C
     Dosage: DEIVED DOSESES (1200 MG, 1 IN 1 D), ORAL
     Route: 048
     Dates: start: 20040109
  3. CYTOTEC(MISOPROSTOL) [Concomitant]
  4. AMITIZA(LUBIPROSTONE) [Concomitant]
  5. PEGASYS [Suspect]
     Active Substance: PEGINTERFERON ALFA-2A
     Indication: CHRONIC HEPATITIS C
     Route: 058
     Dates: start: 20040109

REACTIONS (7)
  - Hepatic cirrhosis [None]
  - Memory impairment [None]
  - General physical health deterioration [None]
  - Hepatic encephalopathy [None]
  - Hepatic cancer [None]
  - Hepatitis C [None]
  - Cellulitis [None]

NARRATIVE: CASE EVENT DATE: 2009
